FAERS Safety Report 14368489 (Version 1)
Quarter: 2018Q1

REPORT INFORMATION
  Report Type: Spontaneous
  Country: GB (occurrence: GB)
  Receive Date: 20180109
  Receipt Date: 20180109
  Transmission Date: 20180509
  Serious: Yes (Other)
  Sender: FDA-Public Use
  Company Number: GB-009507513-1801GBR000550

PATIENT
  Age: 69 Year
  Sex: Female
  Weight: 63.5 kg

DRUGS (7)
  1. LEVOTHYROXINE SODIUM. [Concomitant]
     Active Substance: LEVOTHYROXINE SODIUM
  2. FLUOXETINE [Concomitant]
     Active Substance: FLUOXETINE HYDROCHLORIDE
  3. ACETAMINOPHEN AND CODEINE [Concomitant]
     Active Substance: ACETAMINOPHEN\CODEINE PHOSPHATE
  4. AMOXICILLIN. [Concomitant]
     Active Substance: AMOXICILLIN
  5. ADCAL-D3 [Concomitant]
     Active Substance: CALCIUM CARBONATE\CHOLECALCIFEROL
  6. TEMAZEPAM. [Concomitant]
     Active Substance: TEMAZEPAM
  7. BETAMETHASONE SODIUM PHOSPHATE [Suspect]
     Active Substance: BETAMETHASONE SODIUM PHOSPHATE
     Indication: MOUTH ULCERATION
     Dosage: UP TO 4 TIMES DAILY. ; AS NECESSARY
     Route: 002
     Dates: start: 20171216, end: 20171216

REACTIONS (4)
  - Dyspnoea [Recovered/Resolved]
  - Idiosyncratic drug reaction [Recovered/Resolved]
  - Chest discomfort [Recovered/Resolved]
  - Ear discomfort [Recovered/Resolved]

NARRATIVE: CASE EVENT DATE: 20171216
